FAERS Safety Report 8803675 (Version 2)
Quarter: 2013Q1

REPORT INFORMATION
  Report Type: Report from Study
  Country: CA (occurrence: CA)
  Receive Date: 20120924
  Receipt Date: 20130118
  Transmission Date: 20140127
  Serious: Yes (Other)
  Sender: FDA-Public Use
  Company Number: CA-JNJFOC-20120907105

PATIENT
  Age: 60 Year
  Sex: Male
  Weight: 118 kg

DRUGS (22)
  1. REMICADE [Suspect]
     Indication: COLITIS
     Route: 042
     Dates: start: 20090429
  2. OMEPRAZOLE [Concomitant]
     Route: 065
  3. PHAZYME [Concomitant]
     Route: 065
  4. CODEINE [Concomitant]
     Route: 065
  5. DIOVAN [Concomitant]
     Route: 065
  6. AMITRIPTYLINE [Concomitant]
     Route: 065
  7. ACIDOPHILUS [Concomitant]
     Route: 065
  8. BECLOMETHASONE [Concomitant]
     Route: 065
  9. CALCIUM [Concomitant]
     Route: 065
  10. FOLIC ACID [Concomitant]
     Route: 065
  11. POTASSIUM [Concomitant]
     Route: 065
  12. MULTIVITAMINS [Concomitant]
     Route: 065
  13. CANESTEN [Concomitant]
     Route: 065
  14. NOVO-HYDROCORT [Concomitant]
     Route: 065
  15. PREDNISONE [Concomitant]
     Route: 065
  16. AMOXICILLIN [Concomitant]
     Route: 065
  17. CIPROFLOXACIN [Concomitant]
     Route: 065
  18. SALOFALK [Concomitant]
     Route: 065
  19. VIT B COMPLEX [Concomitant]
     Route: 065
  20. INSULIN [Concomitant]
     Route: 065
  21. METHOTREXATE [Concomitant]
     Route: 065
  22. ZOPICLONE [Concomitant]
     Route: 065

REACTIONS (2)
  - Haemoglobin decreased [Recovered/Resolved]
  - Insomnia [Unknown]
